FAERS Safety Report 9904649 (Version 3)
Quarter: 2014Q3

REPORT INFORMATION
  Report Type: Spontaneous
  Country: JP (occurrence: JP)
  Receive Date: 20140218
  Receipt Date: 20140912
  Transmission Date: 20150326
  Serious: Yes (Hospitalization, Other)
  Sender: FDA-Public Use
  Company Number: JP-PFIZER INC-2014042337

PATIENT
  Age: 7 Year
  Sex: Male

DRUGS (1)
  1. METHYLPREDNISOLONE SODIUM SUCCINATE. [Suspect]
     Active Substance: METHYLPREDNISOLONE SODIUM SUCCINATE
     Indication: DYSPNOEA
     Dosage: UNK
     Route: 042

REACTIONS (7)
  - Cough [Recovering/Resolving]
  - Hypoxia [Recovering/Resolving]
  - Anaphylactic reaction [Recovering/Resolving]
  - Convulsion [Unknown]
  - Cardiac arrest [Unknown]
  - Drug hypersensitivity [Unknown]
  - Respiratory arrest [Recovering/Resolving]
